FAERS Safety Report 20702248 (Version 1)
Quarter: 2022Q2

REPORT INFORMATION
  Report Type: Report from Study
  Country: US (occurrence: US)
  Receive Date: 20220412
  Receipt Date: 20220412
  Transmission Date: 20220721
  Serious: No
  Sender: FDA-Public Use
  Company Number: US-SUNOVION-2022SUN001088

PATIENT
  Age: 61 Year
  Sex: Female

DRUGS (1)
  1. KYNMOBI [Suspect]
     Active Substance: APOMORPHINE HYDROCHLORIDE
     Dosage: 10 MG
     Route: 060
     Dates: start: 20220401

REACTIONS (5)
  - Head discomfort [Recovered/Resolved]
  - Vision blurred [Unknown]
  - Orthostatic hypotension [Unknown]
  - Nausea [Unknown]
  - Dizziness [Unknown]

NARRATIVE: CASE EVENT DATE: 20220401
